FAERS Safety Report 26001991 (Version 3)
Quarter: 2025Q4

REPORT INFORMATION
  Report Type: Report from Study
  Country: EU (occurrence: EU)
  Receive Date: 20251105
  Receipt Date: 20251126
  Transmission Date: 20260117
  Serious: Yes (Hospitalization)
  Sender: ABBVIE
  Company Number: EU-ABBVIE-6526769

PATIENT
  Age: 80 Year
  Sex: Male
  Weight: 61 kg

DRUGS (2)
  1. CARBIDOPA\LEVODOPA [Suspect]
     Active Substance: CARBIDOPA\LEVODOPA
     Indication: Parkinson^s disease
     Route: 050
     Dates: start: 20241010
  2. CARBIDOPA\LEVODOPA [Suspect]
     Active Substance: CARBIDOPA\LEVODOPA

REACTIONS (9)
  - Food refusal [Recovering/Resolving]
  - Muscular weakness [Unknown]
  - Device issue [Recovered/Resolved]
  - Wheelchair user [Unknown]
  - Gastritis [Unknown]
  - Discomfort [Recovering/Resolving]
  - Hypoaesthesia [Unknown]
  - Hypophagia [Recovering/Resolving]
  - Paraesthesia [Unknown]

NARRATIVE: CASE EVENT DATE: 20251001
